FAERS Safety Report 8682326 (Version 3)
Quarter: 2013Q1

REPORT INFORMATION
  Report Type: Report from Study
  Country: JP (occurrence: JP)
  Receive Date: 20120725
  Receipt Date: 20130208
  Transmission Date: 20140127
  Serious: Yes (Death)
  Sender: FDA-Public Use
  Company Number: JP-PFIZER INC-2012175559

PATIENT
  Age: 72 Year
  Sex: Female
  Weight: 38.6 kg

DRUGS (13)
  1. XALKORI [Suspect]
     Indication: NON-SMALL CELL LUNG CANCER
     Dosage: 250 MG, SINGLE
     Route: 048
     Dates: start: 20120719, end: 20120719
  2. VASOLAN [Concomitant]
     Dosage: 40 MG, 4X/DAY
     Route: 048
     Dates: end: 20120719
  3. TAKEPRON [Concomitant]
     Dosage: 15 MG, 1X/DAY
     Route: 048
     Dates: end: 20120719
  4. MAGMITT [Concomitant]
     Dosage: 660 MG, 3X/DAY
     Route: 048
     Dates: end: 20120719
  5. WARFARIN [Concomitant]
     Dosage: 3 MG, 1X/DAY
     Route: 048
     Dates: end: 20120719
  6. NAUZELIN [Concomitant]
     Dosage: 10 MG, 2X/DAY
     Route: 048
     Dates: start: 20120719, end: 20120719
  7. ONEDURO [Concomitant]
     Dosage: 1.7 MG, 1X/DAY
     Route: 062
     Dates: end: 20120719
  8. ALDACTONE-A [Concomitant]
     Dosage: 25 MG, 1X/DAY
     Route: 048
     Dates: end: 20120719
  9. MOHRUS [Concomitant]
     Dosage: UNK
     Route: 062
     Dates: end: 20120719
  10. SELTOUCH [Concomitant]
     Dosage: UNK
     Route: 062
     Dates: end: 20120719
  11. PANVITAN [Concomitant]
     Dosage: 1 G, 1X/DAY
     Route: 048
     Dates: end: 20120719
  12. SOLULACT [Concomitant]
     Dosage: 500 ML, 1X/DAY
     Dates: start: 20120719, end: 20120719
  13. BOSMIN [Concomitant]
     Dosage: 1 ML, 4X/DAY
     Dates: start: 20120719, end: 20120719

REACTIONS (1)
  - Death [Fatal]
